FAERS Safety Report 14566871 (Version 1)
Quarter: 2018Q1

REPORT INFORMATION
  Report Type: Other
  Country: IT (occurrence: IT)
  Receive Date: 20180223
  Receipt Date: 20180223
  Transmission Date: 20180509
  Serious: Yes (Other)
  Sender: FDA-Public Use
  Company Number: IT-GLENMARK PHARMACEUTICALS-2017GMK032381

PATIENT

DRUGS (3)
  1. ALGINATOL [Suspect]
     Active Substance: SODIUM ALGINATE
     Indication: OESOPHAGEAL CANDIDIASIS
     Dosage: UNK
     Route: 065
     Dates: start: 20170831
  2. FLUCONAZOLE. [Suspect]
     Active Substance: FLUCONAZOLE
     Indication: OESOPHAGEAL CANDIDIASIS
     Dosage: UNK
     Route: 065
     Dates: start: 20170831
  3. PANTOPRAZOLE SODIUM SESQUIHYDRATE [Suspect]
     Active Substance: PANTOPRAZOLE SODIUM
     Indication: OESOPHAGEAL CANDIDIASIS
     Dosage: UNK
     Route: 065
     Dates: start: 20170831

REACTIONS (3)
  - Abdominal pain upper [Unknown]
  - Erythema [Unknown]
  - Pruritus generalised [Unknown]

NARRATIVE: CASE EVENT DATE: 20170901
